FAERS Safety Report 5922162-7 (Version None)
Quarter: 2008Q4

REPORT INFORMATION
  Report Type: 
  Country: None (occurrence: None)
  Receive Date: 20081014
  Receipt Date: 20081002
  Transmission Date: 20090506
  Serious: Yes (Hospitalization, Other)
  Sender: FDA-Public Use
  Company Number: 2008BI020609

PATIENT
  Age: 49 Year
  Sex: Female

DRUGS (1)
  1. TYSABRI [Suspect]
     Indication: MULTIPLE SCLEROSIS
     Dosage: 300 MG; QM; IV
     Route: 042
     Dates: start: 20080327

REACTIONS (7)
  - ASTROCYTOMA MALIGNANT [None]
  - DEMYELINATION [None]
  - DIPLOPIA [None]
  - FACIAL PALSY [None]
  - GLIOBLASTOMA MULTIFORME [None]
  - MUSCULAR WEAKNESS [None]
  - PARAESTHESIA [None]
